FAERS Safety Report 9219994 (Version 2)
Quarter: 2013Q2

REPORT INFORMATION
  Report Type: Spontaneous
  Country: SE (occurrence: SE)
  Receive Date: 20130409
  Receipt Date: 20130621
  Transmission Date: 20140414
  Serious: Yes (Other)
  Sender: FDA-Public Use
  Company Number: SE-ROCHE-1210275

PATIENT
  Sex: Male

DRUGS (4)
  1. ACTILYSE [Suspect]
     Indication: PERIPHERAL EMBOLISM
     Route: 013
  2. ACTILYSE [Suspect]
     Indication: OFF LABEL USE
  3. HEPARIN LEO [Concomitant]
     Indication: PERIPHERAL EMBOLISM
     Dosage: 10300 IE IN EACH LEG
     Route: 065
  4. TINZAPARIN [Concomitant]
     Dosage: 9000 UNIT
     Route: 058

REACTIONS (5)
  - Reperfusion injury [Unknown]
  - Myoglobinaemia [Unknown]
  - Renal failure [Recovered/Resolved]
  - Erythema [Unknown]
  - Local swelling [Unknown]
